FAERS Safety Report 8163738-9 (Version None)
Quarter: 2012Q1

REPORT INFORMATION
  Report Type: 
  Country: None (occurrence: None)
  Receive Date: 20120224
  Receipt Date: 20120215
  Transmission Date: 20120608
  Serious: Yes (Other)
  Sender: FDA-Public Use
  Company Number: IT-JNJFOC-20120208460

PATIENT
  Sex: Male

DRUGS (4)
  1. REMICADE [Suspect]
     Indication: PSORIATIC ARTHROPATHY
     Route: 042
     Dates: start: 20060309, end: 20111114
  2. ESOMEPRAZOLE MAGNESIUM [Concomitant]
     Route: 048
  3. RAMIPRIL [Concomitant]
     Route: 048
  4. CARVEDILOL [Concomitant]
     Route: 048

REACTIONS (1)
  - COLON ADENOMA [None]
